FAERS Safety Report 10713610 (Version 2)
Quarter: 2015Q1

REPORT INFORMATION
  Report Type: Spontaneous
  Country: JP (occurrence: JP)
  Receive Date: 20150115
  Receipt Date: 20150120
  Transmission Date: 20150721
  Serious: Yes (Death, Life-Threatening)
  Sender: FDA-Public Use
  Company Number: JP-ASTRAZENECA-2015SE03390

PATIENT
  Age: 40 Year
  Sex: Female

DRUGS (8)
  1. ERIBULIN MESILATE [Concomitant]
     Active Substance: ERIBULIN
     Dosage: DOSE UNKNOWN
     Route: 065
     Dates: start: 2010
  2. ARIMIDEX [Suspect]
     Active Substance: ANASTROZOLE
     Indication: BREAST CANCER
     Route: 048
     Dates: start: 2009
  3. GEMCITABINE [Concomitant]
     Active Substance: GEMCITABINE\GEMCITABINE HYDROCHLORIDE
     Dosage: DOSE UNKNOWN
     Route: 065
     Dates: start: 2010
  4. OTHER ANTITUMOR AGENTS [Concomitant]
     Active Substance: UNSPECIFIED INGREDIENT
     Dosage: DOSE UNKNOWN
     Route: 065
  5. ZOLADEX [Suspect]
     Active Substance: GOSERELIN ACETATE
     Indication: BREAST CANCER
     Route: 058
     Dates: start: 2009
  6. ZOLEDRONIC ACID HYDRATE [Concomitant]
     Active Substance: ZOLEDRONIC ACID
     Indication: BREAST CANCER
     Dosage: DOSE UNKNOWN
     Route: 065
     Dates: end: 2009
  7. NOLVADEX [Suspect]
     Active Substance: TAMOXIFEN CITRATE
     Indication: BREAST CANCER
     Dosage: DOSE UNKNOWN
     Route: 048
  8. TOREMIFENE CITRATE [Concomitant]
     Active Substance: TOREMIFENE CITRATE
     Indication: BREAST CANCER
     Dosage: DOSE UNKNOWN
     Route: 065
     Dates: start: 2010

REACTIONS (2)
  - Hepatic cirrhosis [Fatal]
  - Oesophageal varices haemorrhage [Fatal]

NARRATIVE: CASE EVENT DATE: 201305
